FAERS Safety Report 7957741 (Version 2)
Quarter: 2016Q2

REPORT INFORMATION
  Report Type: Report from Study
  Country: US (occurrence: US)
  Receive Date: 20110524
  Receipt Date: 20160520
  Transmission Date: 20160815
  Serious: Yes (Death, Life-Threatening, Hospitalization)
  Sender: FDA-Public Use
  Company Number: US-ASTRAZENECA-2011SE24473

PATIENT
  Age: 987 Month
  Sex: Female
  Weight: 81.2 kg

DRUGS (19)
  1. ZD6474 [Suspect]
     Active Substance: VANDETANIB
     Indication: GLIOBLASTOMA
     Route: 048
     Dates: start: 20110324, end: 20110425
  2. DEXAMETHASONE. [Concomitant]
     Active Substance: DEXAMETHASONE
     Route: 048
  3. RADIATION THERAPY [Suspect]
     Active Substance: RADIATION THERAPY
     Indication: GLIOBLASTOMA
     Route: 065
  4. AMLODIPINE [Concomitant]
     Active Substance: AMLODIPINE BESYLATE
     Route: 048
  5. TEMOZOLOMIDE. [Suspect]
     Active Substance: TEMOZOLOMIDE
     Indication: GLIOBLASTOMA
     Route: 048
     Dates: start: 20110329, end: 20110425
  6. PRAVASTATIN [Concomitant]
     Active Substance: PRAVASTATIN\PRAVASTATIN SODIUM
     Route: 048
  7. ADVAIR DISKUS [Concomitant]
     Active Substance: FLUTICASONE PROPIONATE\SALMETEROL XINAFOATE
     Dosage: 100-50 MCG
  8. COLACE [Concomitant]
     Active Substance: DOCUSATE SODIUM
  9. DECADRON [Concomitant]
     Active Substance: DEXAMETHASONE
  10. K-PHOS NEUTRAL [Concomitant]
     Active Substance: POTASSIUM PHOSPHATE\SODIUM PHOSPHATE
     Route: 048
  11. NORVASC [Concomitant]
     Active Substance: AMLODIPINE BESYLATE
  12. BACTRIM DS [Concomitant]
     Active Substance: SULFAMETHOXAZOLE\TRIMETHOPRIM
     Dosage: 160-800 MG TABLET PO BID
     Route: 048
  13. INSULIN REGULAR [Concomitant]
     Active Substance: INSULIN NOS
  14. INH [Concomitant]
     Active Substance: ISONIAZID
  15. SENNA [Concomitant]
     Active Substance: SENNA LEAF\SENNOSIDES\SENNOSIDES A AND B
  16. SYNTHROID [Concomitant]
     Active Substance: LEVOTHYROXINE SODIUM
     Route: 048
  17. ALBUTEROL. [Concomitant]
     Active Substance: ALBUTEROL
  18. TYLENOL [Concomitant]
     Active Substance: ACETAMINOPHEN
     Dosage: 650 MG Q6H PRN
     Route: 048
  19. CALCIUM +D [Concomitant]
     Active Substance: CALCIUM\VITAMIN D
     Route: 048

REACTIONS (5)
  - Death [Fatal]
  - Pancytopenia [Unknown]
  - Thrombocytopenia [Unknown]
  - Pneumonia [Fatal]
  - Febrile neutropenia [Unknown]

NARRATIVE: CASE EVENT DATE: 201005
